FAERS Safety Report 17279845 (Version 1)
Quarter: 2020Q1

REPORT INFORMATION
  Report Type: Spontaneous
  Country: US (occurrence: US)
  Receive Date: 20200116
  Receipt Date: 20200116
  Transmission Date: 20200409
  Serious: Yes (Life-Threatening, Hospitalization, Other)
  Sender: FDA-Public Use
  Company Number: US-DRREDDYS-USA/USA/20/0118631

PATIENT
  Age: 47 Year
  Sex: Male

DRUGS (1)
  1. HEPARIN SODIUM. [Suspect]
     Active Substance: HEPARIN SODIUM
     Indication: ANTICOAGULANT THERAPY

REACTIONS (4)
  - Bradycardia [Recovered/Resolved]
  - Thrombosis [Recovered/Resolved]
  - Obstructive airways disorder [Recovered/Resolved]
  - Respiratory distress [Recovered/Resolved]
